FAERS Safety Report 6712336-X (Version None)
Quarter: 2010Q2

REPORT INFORMATION
  Report Type: 
  Country: None (occurrence: None)
  Receive Date: 20100505
  Receipt Date: 20100423
  Transmission Date: 20101027
  Serious: Yes (Hospitalization, Other)
  Sender: FDA-Public Use
  Company Number: ES-ELI_LILLY_AND_COMPANY-ES201004006611

PATIENT
  Sex: Female

DRUGS (7)
  1. FORTEO [Suspect]
     Indication: OSTEOPOROSIS
     Dosage: 20 UG, DAILY (1/D)
     Route: 058
     Dates: start: 20090606
  2. ENALAPRIL MALEATE [Concomitant]
     Indication: HYPERTENSION
     Dosage: 25 MG, DAILY (1/D)
     Route: 048
  3. DECORTIN [Concomitant]
     Indication: ARTERITIS
     Dosage: 5 MG, 2/D
     Route: 048
  4. ADOLONTA [Concomitant]
     Indication: PAIN
     Dosage: 150 MG, 2/D
     Route: 048
  5. IMUREL [Concomitant]
     Indication: ARTERITIS
     Dosage: UNK, DAILY (1/D)
     Route: 048
  6. KEPPRA [Concomitant]
     Indication: EPILEPSY
     Dosage: 50 MG, EVERY 8 HRS
     Route: 048
  7. GABAPENTINA [Concomitant]
     Indication: EPILEPSY
     Dosage: 400 MG, EVERY 8 HRS
     Route: 048

REACTIONS (6)
  - CONVULSION [None]
  - ECCHYMOSIS [None]
  - FALL [None]
  - HAEMATOMA [None]
  - LOSS OF CONSCIOUSNESS [None]
  - URINARY TRACT INFECTION [None]
